FAERS Safety Report 25968259 (Version 2)
Quarter: 2025Q4

REPORT INFORMATION
  Report Type: Spontaneous
  Country: JP (occurrence: JP)
  Receive Date: 20251028
  Receipt Date: 20251223
  Transmission Date: 20260117
  Serious: Yes (Other)
  Sender: ASTELLAS
  Company Number: JP-ASTELLAS-2025-AER-045816

PATIENT
  Age: 9 Decade
  Sex: Male

DRUGS (4)
  1. PADCEV [Suspect]
     Active Substance: ENFORTUMAB VEDOTIN-EJFV
     Indication: Malignant neoplasm of renal pelvis
     Dosage: ADMINISTERED ONCE A WEEK FOR TWO CONSECUTIVE WEEKS, THEN INTERRUPTED DURING THE THIRD WEEK
     Route: 042
     Dates: start: 20250703, end: 20250710
  2. PADCEV [Suspect]
     Active Substance: ENFORTUMAB VEDOTIN-EJFV
     Dosage: ADMINISTERED ONCE A WEEK FOR TWO CONSECUTIVE WEEKS, THEN INTERRUPTED DURING THE THIRD WEEK
     Route: 042
     Dates: start: 20250814, end: 202509
  3. PADCEV [Suspect]
     Active Substance: ENFORTUMAB VEDOTIN-EJFV
     Dosage: ADMINISTERED ONCE A WEEK FOR TWO CONSECUTIVE WEEKS, THEN INTERRUPTED DURING THE THIRD WEEK
     Route: 042
     Dates: start: 20251009, end: 20251009
  4. PEMBROLIZUMAB [Concomitant]
     Active Substance: PEMBROLIZUMAB
     Indication: Malignant neoplasm of renal pelvis
     Route: 065

REACTIONS (3)
  - Retroperitoneal fibrosis [Not Recovered/Not Resolved]
  - Neuropathy peripheral [Recovered/Resolved]
  - Neutrophil count decreased [Recovered/Resolved]

NARRATIVE: CASE EVENT DATE: 20250724
